FAERS Safety Report 5726008-1 (Version None)
Quarter: 2008Q2

REPORT INFORMATION
  Report Type: 
  Country: None (occurrence: None)
  Receive Date: 20080502
  Receipt Date: 20080425
  Transmission Date: 20081010
  Serious: Yes (Other)
  Sender: FDA-Public Use
  Company Number: US-ALLERGAN-0805015US

PATIENT
  Sex: Female

DRUGS (4)
  1. TAZORAC [Suspect]
     Indication: PSORIASIS
     Dosage: UNK, BID
     Route: 061
  2. DILTIAZEM [Concomitant]
     Indication: HYPERTENSION
     Dosage: 180 MG, QD
     Route: 048
  3. HYDRALAZINE HCL [Concomitant]
     Indication: HYPERTENSION
  4. CATAPRES-TTS-1 [Concomitant]
     Indication: HYPERTENSION
     Dosage: UNK, Q WEEK
     Route: 062

REACTIONS (4)
  - APPLICATION SITE ERYTHEMA [None]
  - HYPERTENSION [None]
  - RASH [None]
  - SKIN BURNING SENSATION [None]
